FAERS Safety Report 8154518-9 (Version None)
Quarter: 2012Q1

REPORT INFORMATION
  Report Type: 
  Country: None (occurrence: None)
  Receive Date: 20120221
  Receipt Date: 20120210
  Transmission Date: 20120608
  Serious: Yes (Other)
  Sender: FDA-Public Use
  Company Number: US-NOVOPROD-334205

PATIENT
  Age: 68 Year
  Sex: Female
  Weight: 87.075 kg

DRUGS (5)
  1. LIRAGLUTIDE FLEXPEN [Suspect]
     Dosage: 2.4 MG, QD
     Route: 058
     Dates: start: 20110713, end: 20110719
  2. LIRAGLUTIDE FLEXPEN [Suspect]
     Dosage: 1.8 MG, QD
     Route: 058
     Dates: start: 20110706, end: 20110712
  3. LIRAGLUTIDE FLEXPEN [Suspect]
     Indication: TYPE 2 DIABETES MELLITUS
     Dosage: 1.2 MG, QD
     Route: 058
     Dates: start: 20110629, end: 20110705
  4. LIRAGLUTIDE FLEXPEN [Suspect]
     Indication: OBESITY
     Dosage: 0.6 MG, QD
     Route: 058
     Dates: start: 20110622, end: 20110628
  5. LIRAGLUTIDE FLEXPEN [Suspect]
     Dosage: 3.0 MG, QD
     Route: 058
     Dates: start: 20110720

REACTIONS (2)
  - HYPERLIPASAEMIA [None]
  - WEIGHT DECREASED [None]
